APPROVED DRUG PRODUCT: CYCLOPHOSPHAMIDE
Active Ingredient: CYCLOPHOSPHAMIDE
Strength: 500MG/2.5ML (200MG/ML)
Dosage Form/Route: SOLUTION;INTRAVENOUS
Application: A216783 | Product #001 | TE Code: AP
Applicant: NEXUS PHARMACEUTICALS LLC
Approved: Oct 29, 2024 | RLD: No | RS: No | Type: RX